FAERS Safety Report 6048026-9 (Version None)
Quarter: 2009Q1

REPORT INFORMATION
  Report Type: 
  Country: None (occurrence: None)
  Receive Date: 20090123
  Receipt Date: 20090113
  Transmission Date: 20090719
  Serious: Yes (Hospitalization, Other)
  Sender: FDA-Public Use
  Company Number: US-JNJFOC-20081101453

PATIENT
  Sex: Male
  Weight: 70 kg

DRUGS (6)
  1. REMICADE [Suspect]
     Indication: CROHN'S DISEASE
     Route: 042
  2. PREDNISONE TAB [Concomitant]
  3. HYDRALAZINE HCL [Concomitant]
  4. LISINOPRIL [Concomitant]
  5. HYDROCHLOROTHIAZIDE [Concomitant]
     Dosage: DOSE 10/12.5 MG
  6. OMEPRAZOLE [Concomitant]

REACTIONS (4)
  - DRUG INEFFECTIVE [None]
  - HERPES SIMPLEX OPHTHALMIC [None]
  - ORAL HERPES [None]
  - TUBULOINTERSTITIAL NEPHRITIS [None]
